FAERS Safety Report 10217642 (Version 2)
Quarter: 2014Q2

REPORT INFORMATION
  Report Type: Spontaneous
  Country: US (occurrence: US)
  Receive Date: 20140604
  Receipt Date: 20140604
  Transmission Date: 20141212
  Serious: No
  Sender: FDA-Public Use
  Company Number: US-GILEAD-2013-0075215

PATIENT
  Age: 20 Year
  Sex: Male
  Weight: 56.69 kg

DRUGS (2)
  1. VIREAD [Suspect]
     Indication: HEPATITIS B
     Dosage: 300 MG, QD
     Route: 065
     Dates: start: 20111121
  2. VIREAD [Suspect]
     Dosage: UNK

REACTIONS (1)
  - Rash [Not Recovered/Not Resolved]
